FAERS Safety Report 7577725-2 (Version None)
Quarter: 2011Q2

REPORT INFORMATION
  Report Type: 
  Country: None (occurrence: None)
  Receive Date: 20110628
  Receipt Date: 20110622
  Transmission Date: 20111010
  Serious: Yes (Other)
  Sender: FDA-Public Use
  Company Number: CA-PFIZER INC-2011139885

PATIENT
  Age: 69 Year
  Sex: Male

DRUGS (11)
  1. NOVOLIN GE TORONTO [Concomitant]
     Dosage: UNK
  2. XALATAN [Suspect]
     Indication: GLAUCOMA
     Dosage: 1 GTT, 1X/DAY AT BEDTIME
     Route: 047
  3. AMLODIPINE [Concomitant]
     Dosage: UNK
  4. PRAVASTATIN [Concomitant]
     Dosage: UNK
  5. DOXAZOSIN [Concomitant]
     Dosage: UNK
  6. RASILEZ [Concomitant]
     Dosage: UNK
  7. BRIMONIDINE [Concomitant]
     Dosage: UNK
  8. PREDNISONE [Concomitant]
     Dosage: UNK
  9. COSOPT [Concomitant]
     Dosage: UNK
  10. HUMALOG [Concomitant]
     Indication: VITAMIN SUPPLEMENTATION
     Dosage: UNK
  11. EZETIMIBE [Concomitant]
     Dosage: UNK

REACTIONS (1)
  - INTRAOCULAR PRESSURE INCREASED [None]
